FAERS Safety Report 20513893 (Version 1)
Quarter: 2022Q1

REPORT INFORMATION
  Report Type: Spontaneous
  Country: US (occurrence: US)
  Receive Date: 20220224
  Receipt Date: 20220224
  Transmission Date: 20220423
  Serious: No
  Sender: FDA-Public Use
  Company Number: US-AMNEAL PHARMACEUTICALS-2021-AMRX-04370

PATIENT
  Age: 64 Year
  Sex: Male

DRUGS (1)
  1. RYTARY [Suspect]
     Active Substance: CARBIDOPA\LEVODOPA
     Indication: Product used for unknown indication
     Dosage: 3 CAPSULES, TID
     Route: 048
     Dates: start: 20210822, end: 20211019

REACTIONS (5)
  - Obsessive thoughts [Recovering/Resolving]
  - Compulsive sexual behaviour [Recovering/Resolving]
  - Compulsive shopping [Recovering/Resolving]
  - Somnolence [Recovering/Resolving]
  - Dyskinesia [Recovering/Resolving]

NARRATIVE: CASE EVENT DATE: 20210827
